FAERS Safety Report 6730404-3 (Version None)
Quarter: 2010Q2

REPORT INFORMATION
  Report Type: 
  Country: None (occurrence: None)
  Receive Date: 20100518
  Receipt Date: 20100512
  Transmission Date: 20101027
  Serious: Yes (Other)
  Sender: FDA-Public Use
  Company Number: A0859380A

PATIENT
  Age: 71 Year
  Sex: Female

DRUGS (5)
  1. ADVAIR DISKUS 100/50 [Suspect]
     Indication: CHRONIC OBSTRUCTIVE PULMONARY DISEASE
     Dosage: 1PUFF PER DAY
     Route: 055
  2. SPIRIVA [Concomitant]
  3. COMBIVENT [Concomitant]
  4. RED YEAST RICE [Concomitant]
  5. CALCIUM + D. VITAMIN [Concomitant]

REACTIONS (3)
  - CATARACT [None]
  - DYSPHONIA [None]
  - PNEUMONIA [None]
